FAERS Safety Report 9396058 (Version 2)
Quarter: 2013Q4

REPORT INFORMATION
  Report Type: Spontaneous
  Country: GB (occurrence: None)
  Receive Date: 20130708
  Receipt Date: 20131206
  Transmission Date: 20140711
  Serious: Yes (Hospitalization)
  Sender: FDA-Public Use
  Company Number: AUR-APL-2013-05528

PATIENT
  Age: 20 Year
  Sex: Female
  Weight: 60.32 kg

DRUGS (1)
  1. SERTRALINE (SERTRALINE) (SERTRALINE) [Suspect]
     Indication: FATIGUE
     Route: 048
     Dates: start: 20121026, end: 20121026

REACTIONS (34)
  - Ocular hyperaemia [None]
  - Pupillary light reflex tests abnormal [None]
  - Feeling abnormal [None]
  - Dysgeusia [None]
  - Feeling abnormal [None]
  - Cognitive disorder [None]
  - Disturbance in attention [None]
  - Tremor [None]
  - Hyperhidrosis [None]
  - Feeling cold [None]
  - Gastrointestinal motility disorder [None]
  - Decreased appetite [None]
  - Increased appetite [None]
  - Dysuria [None]
  - Pollakiuria [None]
  - Palpitations [None]
  - Muscle spasms [None]
  - Dyskinesia [None]
  - Dreamy state [None]
  - Headache [None]
  - Hypoaesthesia [None]
  - Flushing [None]
  - Dizziness [None]
  - Fatigue [None]
  - Emotional disorder [None]
  - Photophobia [None]
  - Insomnia [None]
  - Abnormal dreams [None]
  - Menstrual disorder [None]
  - Serotonin syndrome [None]
  - Cardiovascular disorder [None]
  - Ocular hyperaemia [None]
  - Feeling abnormal [None]
  - Malaise [None]
